FAERS Safety Report 24641565 (Version 1)
Quarter: 2024Q4

REPORT INFORMATION
  Report Type: Spontaneous
  Country: BE (occurrence: BE)
  Receive Date: 20241120
  Receipt Date: 20241120
  Transmission Date: 20250115
  Serious: Yes (Death)
  Sender: STRIDES
  Company Number: BE-STRIDES ARCOLAB LIMITED-2024SP014921

PATIENT
  Age: 7 Decade
  Sex: Female

DRUGS (17)
  1. ETOPOSIDE [Suspect]
     Active Substance: ETOPOSIDE
     Indication: Neuroendocrine carcinoma
     Dosage: UNK, CYCLICAL, FOUR CYCLES OF ADJUVANT CHEMOTHERAPY
     Route: 065
  2. ETOPOSIDE [Suspect]
     Active Substance: ETOPOSIDE
     Indication: Adenocarcinoma
     Dosage: 100 MILLIGRAM, QD, 10 CYCLES
     Route: 065
     Dates: start: 202111, end: 202208
  3. KETOCONAZOLE [Suspect]
     Active Substance: KETOCONAZOLE
     Indication: Cushing^s syndrome
     Dosage: UNK
     Route: 065
  4. CISPLATIN [Suspect]
     Active Substance: CISPLATIN
     Indication: Neuroendocrine carcinoma
     Dosage: UNK, CYCLICAL, FOUR CYCLES OF ADJUVANT CHEMOTHERAPY
     Route: 065
  5. CISPLATIN [Suspect]
     Active Substance: CISPLATIN
     Indication: Adenocarcinoma
  6. CARBOPLATIN [Suspect]
     Active Substance: CARBOPLATIN
     Indication: Neuroendocrine carcinoma
     Dosage: UNK, CYCLICAL, 10 CYCLES
     Route: 065
     Dates: start: 202111, end: 202208
  7. CARBOPLATIN [Suspect]
     Active Substance: CARBOPLATIN
     Indication: Adenocarcinoma
  8. CAPECITABINE [Concomitant]
     Active Substance: CAPECITABINE
     Indication: Neuroendocrine carcinoma
     Dosage: 625 MILLIGRAM/SQ. METER
     Route: 065
     Dates: start: 202209
  9. CAPECITABINE [Concomitant]
     Active Substance: CAPECITABINE
     Indication: Adenocarcinoma
  10. TEMOZOLOMIDE [Concomitant]
     Active Substance: TEMOZOLOMIDE
     Indication: Neuroendocrine carcinoma
     Dosage: 100 MILLIGRAM/SQ. METER
     Route: 065
     Dates: start: 202209
  11. TEMOZOLOMIDE [Concomitant]
     Active Substance: TEMOZOLOMIDE
     Indication: Adenocarcinoma
  12. EVEROLIMUS [Concomitant]
     Active Substance: EVEROLIMUS
     Indication: Neuroendocrine carcinoma
     Dosage: 5 MILLIGRAM, QD
     Route: 065
     Dates: start: 202211
  13. EVEROLIMUS [Concomitant]
     Active Substance: EVEROLIMUS
     Indication: Adenocarcinoma
  14. FLUOROURACIL [Concomitant]
     Active Substance: FLUOROURACIL
     Indication: Neuroendocrine carcinoma
     Dosage: 2400 MILLIGRAM/SQ. METER
     Route: 065
     Dates: start: 202302
  15. FLUOROURACIL [Concomitant]
     Active Substance: FLUOROURACIL
     Indication: Adenocarcinoma
  16. IRINOTECAN [Concomitant]
     Active Substance: IRINOTECAN
     Indication: Neuroendocrine carcinoma
     Dosage: 180 MILLIGRAM/SQ. METER
     Route: 065
     Dates: start: 202302
  17. IRINOTECAN [Concomitant]
     Active Substance: IRINOTECAN
     Indication: Adenocarcinoma

REACTIONS (3)
  - Malignant neoplasm progression [Fatal]
  - Drug ineffective [Fatal]
  - Off label use [Unknown]
